FAERS Safety Report 25822447 (Version 1)
Quarter: 2025Q3

REPORT INFORMATION
  Report Type: Report from Study
  Country: US (occurrence: US)
  Receive Date: 20250919
  Receipt Date: 20250919
  Transmission Date: 20251020
  Serious: Yes (Hospitalization, Other)
  Sender: ACADIA PHARMACEUTICALS
  Company Number: US-ACADIA PHARMACEUTICALS INC.-ACA-2025-PIM-010358

PATIENT
  Age: 84 Year
  Sex: Male

DRUGS (13)
  1. NUPLAZID [Suspect]
     Active Substance: PIMAVANSERIN TARTRATE
     Indication: Hallucination
     Dosage: 34 MILLIGRAM, QD
     Route: 048
     Dates: start: 20241212
  2. ALTACE [Concomitant]
     Active Substance: RAMIPRIL
  3. CALCIUM\ERGOCALCIFEROL [Concomitant]
     Active Substance: CALCIUM\ERGOCALCIFEROL
  4. FLOMAX [Concomitant]
     Active Substance: TAMSULOSIN HYDROCHLORIDE
  5. WARFARIN [Concomitant]
     Active Substance: WARFARIN
  6. MEMANTINE [Concomitant]
     Active Substance: MEMANTINE
  7. DOFETILIDE [Concomitant]
     Active Substance: DOFETILIDE
  8. MIDODRINE [Concomitant]
     Active Substance: MIDODRINE
  9. COUMADIN [Concomitant]
     Active Substance: WARFARIN SODIUM
  10. COREG [Concomitant]
     Active Substance: CARVEDILOL
  11. ALDACTONE [Concomitant]
     Active Substance: SPIRONOLACTONE
  12. DIGITEK [Concomitant]
     Active Substance: DIGOXIN
  13. MULTIVITAMIN [ASCORBIC ACID;CALCIUM CARBONATE;CYANOCOBALAMIN;NICOTINAM [Concomitant]

REACTIONS (3)
  - Hip fracture [Not Recovered/Not Resolved]
  - Gait disturbance [Not Recovered/Not Resolved]
  - Product use in unapproved indication [Not Recovered/Not Resolved]

NARRATIVE: CASE EVENT DATE: 20250913
